FAERS Safety Report 5966797-4 (Version None)
Quarter: 2008Q4

REPORT INFORMATION
  Report Type: 
  Country: None (occurrence: None)
  Receive Date: 20081125
  Receipt Date: 20081104
  Transmission Date: 20090506
  Serious: No
  Sender: FDA-Public Use
  Company Number: US-B.I. PHARMACEUTICALS,INC./RIDGEFIELD-2008-BP-15774BP

PATIENT
  Sex: Female

DRUGS (3)
  1. SPIRIVA [Suspect]
     Indication: CHRONIC OBSTRUCTIVE PULMONARY DISEASE
     Dosage: 18MCG
     Route: 055
     Dates: start: 20080715, end: 20081014
  2. QVAR 40 [Concomitant]
     Dosage: 4PUF
     Dates: start: 20071007
  3. ALBUTEROL [Concomitant]
     Dates: start: 20080715

REACTIONS (1)
  - GLOSSODYNIA [None]
